FAERS Safety Report 12090962 (Version 2)
Quarter: 2016Q1

REPORT INFORMATION
  Report Type: Spontaneous
  Country: US (occurrence: US)
  Receive Date: 20160218
  Receipt Date: 20160218
  Transmission Date: 20160526
  Serious: Yes (Death)
  Sender: FDA-Public Use
  Company Number: US-SA-2016SA025673

PATIENT
  Sex: Male

DRUGS (5)
  1. LANTUS [Suspect]
     Active Substance: INSULIN GLARGINE
     Indication: DIABETES MELLITUS
     Route: 065
  2. LEVEMIR [Concomitant]
     Active Substance: INSULIN DETEMIR
  3. NOVOLOG [Concomitant]
     Active Substance: INSULIN ASPART
  4. FLEXPEN [Concomitant]
     Active Substance: UNSPECIFIED INGREDIENT
  5. NOVOLIN R [Concomitant]
     Active Substance: INSULIN HUMAN

REACTIONS (3)
  - Hypoglycaemia [Fatal]
  - Blood glucose increased [Unknown]
  - Drug ineffective [Unknown]

NARRATIVE: CASE EVENT DATE: 20140218
